FAERS Safety Report 16361741 (Version 2)
Quarter: 2019Q3

REPORT INFORMATION
  Report Type: Report from Study
  Country: US (occurrence: US)
  Receive Date: 20190528
  Receipt Date: 20190717
  Transmission Date: 20191004
  Serious: Yes (Hospitalization, Other)
  Sender: FDA-Public Use
  Company Number: US-GILEAD-2019-0409988

PATIENT
  Age: 77 Year
  Sex: Female
  Weight: 76.19 kg

DRUGS (2)
  1. RANOLAZINE. [Suspect]
     Active Substance: RANOLAZINE
     Indication: ANGINA PECTORIS
     Dosage: 1000 MG, BID
     Route: 048
  2. PLAVIX [Concomitant]
     Active Substance: CLOPIDOGREL BISULFATE

REACTIONS (6)
  - Hypertension [Unknown]
  - Blood urine present [Unknown]
  - Renal disorder [Unknown]
  - Cardiac disorder [Not Recovered/Not Resolved]
  - Coronary arterial stent insertion [Unknown]
  - Bladder disorder [Unknown]

NARRATIVE: CASE EVENT DATE: 201810
